FAERS Safety Report 23426868 (Version 1)
Quarter: 2024Q1

REPORT INFORMATION
  Report Type: Spontaneous
  Country: IT (occurrence: IT)
  Receive Date: 20240122
  Receipt Date: 20240122
  Transmission Date: 20240409
  Serious: Yes (Hospitalization)
  Sender: FDA-Public Use
  Company Number: None

PATIENT
  Age: 93 Year
  Sex: Male

DRUGS (8)
  1. CLONAZEPAM [Suspect]
     Active Substance: CLONAZEPAM
     Indication: Epilepsy
     Dosage: 8 GTT WHICH THE PATIENT SELF-ADMINISTERED AS USUAL, UNSUPERVISED
     Route: 048
  2. IRBESARTAN [Concomitant]
     Active Substance: IRBESARTAN
     Dosage: DAILY DOSE: 150 MILLIGRAM
  3. GABAPENTIN [Concomitant]
     Active Substance: GABAPENTIN
     Dosage: 300MG+300MG+400MG?DAILY DOSE: 1000 MILLIGRAM
  4. ALFUZOSIN HYDROCHLORIDE [Concomitant]
     Active Substance: ALFUZOSIN HYDROCHLORIDE
  5. PALEXIA [Concomitant]
     Active Substance: TAPENTADOL HYDROCHLORIDE
     Dosage: 75MG IN THE MORNING + 50MG IN THE EVENING?DAILY DOSE: 125 MILLIGRAM
     Route: 048
  6. PANTOPRAZOLE [Concomitant]
     Active Substance: PANTOPRAZOLE
     Dosage: DAILY DOSE: 20 MILLIGRAM
     Route: 048
  7. AVODART [Concomitant]
     Active Substance: DUTASTERIDE
     Route: 048
  8. XARELTO [Concomitant]
     Active Substance: RIVAROXABAN
     Dosage: DAILY DOSE: 15 MILLIGRAM
     Route: 048

REACTIONS (3)
  - Drug abuse [Recovered/Resolved]
  - Psychomotor skills impaired [Recovered/Resolved]
  - Sopor [Recovered/Resolved]

NARRATIVE: CASE EVENT DATE: 20230808
